FAERS Safety Report 22382552 (Version 1)
Quarter: 2023Q2

REPORT INFORMATION
  Report Type: Spontaneous
  Country: ES (occurrence: ES)
  Receive Date: 20230530
  Receipt Date: 20230530
  Transmission Date: 20230721
  Serious: Yes (Other)
  Sender: FDA-Public Use
  Company Number: ES-MACLEODS PHARMACEUTICALS US LTD-MAC2023041538

PATIENT
  Age: 53 Year
  Sex: Male

DRUGS (4)
  1. SEVELAMER [Suspect]
     Active Substance: SEVELAMER
     Indication: Calciphylaxis
     Dosage: 8 GRAM, QD (SEVELAMER HYDROCHLORIDE)
     Route: 065
  2. SEVELAMER [Suspect]
     Active Substance: SEVELAMER
     Dosage: UNK (DOSE REDUCED)
     Route: 065
  3. SODIUM THIOSULFATE [Concomitant]
     Active Substance: SODIUM THIOSULFATE
     Indication: Calciphylaxis
     Dosage: UNK
     Route: 065
  4. VITAMIN K [Concomitant]
     Active Substance: PHYTONADIONE
     Indication: Calciphylaxis
     Dosage: UNK
     Route: 065

REACTIONS (6)
  - Rectal haemorrhage [Recovered/Resolved]
  - Gastric mucosal lesion [Recovering/Resolving]
  - Diverticulum intestinal [Recovering/Resolving]
  - Pseudopolyp [Recovering/Resolving]
  - Gastritis [Recovering/Resolving]
  - Colitis [Recovering/Resolving]
